FAERS Safety Report 7771557-8 (Version None)
Quarter: 2011Q3

REPORT INFORMATION
  Report Type: 
  Country: None (occurrence: None)
  Receive Date: 20110922
  Receipt Date: 20100105
  Transmission Date: 20111222
  Serious: No
  Sender: FDA-Public Use
  Company Number: US-ASTRAZENECA-2009UW14587

PATIENT
  Age: 48 Year
  Sex: Male

DRUGS (11)
  1. TRAZODONE HYDROCHLORIDE [Concomitant]
     Dates: start: 20051212
  2. CELEXA [Concomitant]
     Route: 048
     Dates: start: 20051212
  3. LEXAPRO [Concomitant]
     Dates: start: 20070926
  4. GABAPENTIN [Concomitant]
     Dates: start: 20071212
  5. SEROQUEL [Suspect]
     Indication: HALLUCINATION, AUDITORY
     Dosage: 25 MG-100 MG
     Route: 048
     Dates: start: 20051212
  6. HYDROCODONE BITARTRATE AND ACETAMINOPHEN [Concomitant]
     Dosage: 7.5-500 MG
     Dates: start: 20070814
  7. SEROQUEL [Suspect]
     Dosage: 400 MG
     Route: 048
     Dates: end: 20071101
  8. ABILIFY [Concomitant]
  9. HYDROXYZINE PAM [Concomitant]
     Dates: start: 20071102
  10. SEROQUEL [Suspect]
     Dosage: 200-400 MG
     Route: 048
     Dates: start: 20061017
  11. TRAMADOL HCL [Concomitant]
     Dates: start: 20071215

REACTIONS (2)
  - EYE DISORDER [None]
  - TYPE 2 DIABETES MELLITUS [None]
